FAERS Safety Report 7433249-4 (Version None)
Quarter: 2011Q2

REPORT INFORMATION
  Report Type: 
  Country: None (occurrence: None)
  Receive Date: 20110422
  Receipt Date: 20110419
  Transmission Date: 20111010
  Serious: Yes (Hospitalization)
  Sender: FDA-Public Use
  Company Number: CHPA2011FR05745

PATIENT
  Age: 65 Year
  Sex: Female

DRUGS (2)
  1. LAMISIL [Suspect]
     Dosage: UNK, DAILY
     Route: 003
     Dates: start: 20110104, end: 20110127
  2. DUODERM                                 /DOM/ [Concomitant]
     Indication: WOUND
     Dosage: UNK, UNK
     Route: 065

REACTIONS (1)
  - ECZEMA [None]
